FAERS Safety Report 26062028 (Version 2)
Quarter: 2025Q4

REPORT INFORMATION
  Report Type: Spontaneous
  Country: BR (occurrence: BR)
  Receive Date: 20251119
  Receipt Date: 20251128
  Transmission Date: 20260118
  Serious: Yes (Other)
  Sender: TEVA
  Company Number: BR-TEVA-VS-3393094

PATIENT
  Age: 24 Year
  Sex: Male

DRUGS (6)
  1. METHOTREXATE [Suspect]
     Active Substance: METHOTREXATE
     Indication: Dermatitis atopic
     Route: 048
     Dates: start: 2021, end: 2021
  2. METHOTREXATE [Suspect]
     Active Substance: METHOTREXATE
     Indication: Dermatitis atopic
     Dosage: INITIAL DOSE NOT STATED
     Route: 058
     Dates: start: 2021, end: 2021
  3. METHOTREXATE [Suspect]
     Active Substance: METHOTREXATE
     Indication: Dermatitis atopic
     Route: 058
     Dates: start: 2021
  4. DUPILUMAB [Suspect]
     Active Substance: DUPILUMAB
     Indication: Dermatitis atopic
     Route: 065
     Dates: start: 202105
  5. DUPILUMAB [Suspect]
     Active Substance: DUPILUMAB
     Indication: Dermatitis atopic
     Route: 065
     Dates: end: 2023
  6. PERMETHRIN [Suspect]
     Active Substance: PERMETHRIN
     Indication: Scabies
     Dosage: PERMETHRIN CONTAINING UNSPECIFIED ALCOHOLS AS A VEHICLE
     Route: 061
     Dates: start: 2023, end: 2023

REACTIONS (3)
  - Scabies [Recovering/Resolving]
  - Scab [Recovering/Resolving]
  - Reaction to excipient [Unknown]

NARRATIVE: CASE EVENT DATE: 20230101
